FAERS Safety Report 8586356-7 (Version None)
Quarter: 2012Q3

REPORT INFORMATION
  Report Type: 
  Country: None (occurrence: None)
  Receive Date: 20120810
  Receipt Date: 20110201
  Transmission Date: 20120928
  Serious: Yes (Life-Threatening, Hospitalization)
  Sender: FDA-Public Use
  Company Number: CN-B.I. PHARMACEUTICALS,INC./RIDGEFIELD-2012-CS-01150CS

PATIENT
  Age: 78 Year
  Sex: Female
  Weight: 58 kg

DRUGS (4)
  1. ADALAT [Concomitant]
     Indication: HYPERTENSION
     Route: 048
  2. AMLODIPINE [Concomitant]
     Indication: HYPERTENSION
     Route: 048
  3. NIFEDIPINE [Concomitant]
     Indication: HYPERTENSION
     Route: 048
  4. MICARDIS [Suspect]
     Indication: HYPERTENSION
     Dosage: FROM 160MG TO 80MG
     Route: 048
     Dates: start: 20101001, end: 20101220

REACTIONS (2)
  - ASTHMA [None]
  - RESPIRATORY FAILURE [None]
